FAERS Safety Report 8183681-9 (Version None)
Quarter: 2012Q1

REPORT INFORMATION
  Report Type: 
  Country: None (occurrence: None)
  Receive Date: 20120305
  Receipt Date: 20120228
  Transmission Date: 20120608
  Serious: Yes (Life-Threatening, Hospitalization, Other)
  Sender: FDA-Public Use
  Company Number: PHHY2009CA19646

PATIENT
  Sex: Male

DRUGS (2)
  1. SANDOSTATIN LAR [Suspect]
     Dosage: 60 MG, EVERY 2 WEEKS
     Route: 030
  2. SANDOSTATIN LAR [Suspect]
     Indication: CARCINOID TUMOUR
     Dosage: 20 MG, BIW
     Route: 030
     Dates: start: 20020520

REACTIONS (8)
  - TERMINAL STATE [None]
  - NEOPLASM PROGRESSION [None]
  - METASTATIC CARCINOID TUMOUR [None]
  - CARCINOID SYNDROME [None]
  - POST PROCEDURAL COMPLICATION [None]
  - NEOPLASM MALIGNANT [None]
  - PNEUMONIA ASPIRATION [None]
  - DIARRHOEA [None]
